FAERS Safety Report 19836962 (Version 3)
Quarter: 2021Q3

REPORT INFORMATION
  Report Type: Spontaneous
  Country: US (occurrence: US)
  Receive Date: 20210914
  Receipt Date: 20210927
  Transmission Date: 20211014
  Serious: Yes (Other)
  Sender: FDA-Public Use
  Company Number: US-ALLERGAN-2132051US

PATIENT
  Sex: Female
  Weight: 92.1 kg

DRUGS (1)
  1. INFED [Suspect]
     Active Substance: IRON DEXTRAN
     Indication: IRON DEFICIENCY ANAEMIA
     Dosage: 5 MG SLOW IVP TEST DOSE
     Route: 041
     Dates: start: 20210818, end: 20210818

REACTIONS (5)
  - Back pain [Recovered/Resolved]
  - Chest discomfort [Recovered/Resolved]
  - Clonus [Recovered/Resolved]
  - Pregnancy [Unknown]
  - Flushing [Recovered/Resolved]

NARRATIVE: CASE EVENT DATE: 20210818
